FAERS Safety Report 4440665-1 (Version None)
Quarter: 2004Q3

REPORT INFORMATION
  Report Type: 
  Country: None (occurrence: None)
  Receive Date: 20040901
  Receipt Date: 20040901
  Transmission Date: 20050211
  Serious: Yes (Hospitalization)
  Sender: FDA-Public Use
  Company Number: None

PATIENT
  Sex: Female
  Weight: 98.4306 kg

DRUGS (14)
  1. COUMADIN [Suspect]
     Indication: MYOCARDIAL INFARCTION
     Dosage: 2.5 MG PO QD
     Route: 048
  2. SLO-MAG [Concomitant]
  3. COMBIVENT [Concomitant]
  4. KCL TAB [Concomitant]
  5. CARDIZEM [Concomitant]
  6. CELEBREX [Concomitant]
  7. PROTONIX [Concomitant]
  8. IMDUR [Concomitant]
  9. DEMADEX [Concomitant]
  10. LIPITOR [Concomitant]
  11. TYLENOL [Concomitant]
  12. AMBIEN [Concomitant]
  13. VICODIN [Concomitant]
  14. DIGOXIN [Concomitant]

REACTIONS (1)
  - FEMUR FRACTURE [None]
